FAERS Safety Report 6782729-3 (Version None)
Quarter: 2010Q2

REPORT INFORMATION
  Report Type: 
  Country: None (occurrence: None)
  Receive Date: 20100621
  Receipt Date: 20100617
  Transmission Date: 20101027
  Serious: Yes (Death)
  Sender: FDA-Public Use
  Company Number: BW-ABBOTT-10P-019-0651774-00

PATIENT
  Sex: Male
  Weight: 2.9 kg

DRUGS (4)
  1. ALUVIA TABLETS 200MG/50MG [Suspect]
     Indication: DRUG EXPOSURE DURING PREGNANCY
     Dosage: 800/200MG DAILY
     Route: 064
     Dates: start: 20100302, end: 20100403
  2. ALUVIA TABLETS 200MG/50MG [Suspect]
     Dosage: 800/200MG DAILY
     Route: 063
     Dates: start: 20100403, end: 20100424
  3. LAMIVUDINE + ZIDOVUDINE [Concomitant]
     Indication: DRUG EXPOSURE DURING PREGNANCY
     Dosage: 300/600 MG DAILY DOSE
     Route: 064
     Dates: start: 20100302, end: 20100403
  4. LAMIVUDINE + ZIDOVUDINE [Concomitant]
     Dosage: 300/600 MG DAILY DOSE
     Route: 063
     Dates: start: 20100403, end: 20100424

REACTIONS (1)
  - DEATH [None]
